FAERS Safety Report 17535873 (Version 1)
Quarter: 2020Q1

REPORT INFORMATION
  Report Type: Spontaneous
  Country: US (occurrence: US)
  Receive Date: 20200313
  Receipt Date: 20200313
  Transmission Date: 20200409
  Serious: No
  Sender: FDA-Public Use
  Company Number: US-GLAXOSMITHKLINE-US2020041506

PATIENT
  Sex: Male

DRUGS (3)
  1. AFRIN [Concomitant]
     Active Substance: OXYMETAZOLINE
     Indication: NASAL CONGESTION
     Dosage: UNK
  2. FLONASE [Suspect]
     Active Substance: FLUTICASONE PROPIONATE
     Indication: HYPERSENSITIVITY
     Dosage: UNK
  3. FLONASE [Suspect]
     Active Substance: FLUTICASONE PROPIONATE

REACTIONS (3)
  - Wrong technique in product usage process [Unknown]
  - Incorrect dose administered [Unknown]
  - Product complaint [Unknown]
